FAERS Safety Report 4486765-1 (Version None)
Quarter: 2004Q4

REPORT INFORMATION
  Report Type: 
  Country: None (occurrence: None)
  Receive Date: 20041027
  Receipt Date: 20041018
  Transmission Date: 20050328
  Serious: Yes (Other)
  Sender: FDA-Public Use
  Company Number: US-JNJFOC-20041006225

PATIENT
  Sex: Male

DRUGS (3)
  1. TOPAMAX [Suspect]
     Route: 049
     Dates: start: 20031001
  2. TOPAMAX [Suspect]
     Route: 049
     Dates: start: 20031001
  3. ZYPREXA [Concomitant]

REACTIONS (1)
  - SALIVARY GLAND CALCULUS [None]
